FAERS Safety Report 13680423 (Version 2)
Quarter: 2017Q2

REPORT INFORMATION
  Report Type: Report from Study
  Country: None (occurrence: NL)
  Receive Date: 20170623
  Receipt Date: 20170629
  Transmission Date: 20170830
  Serious: Yes (Other)
  Sender: FDA-Public Use
  Company Number: NL-ABBVIE-17P-114-2013232-00

PATIENT
  Age: 44 Year
  Sex: Female
  Weight: 74 kg

DRUGS (4)
  1. LUCRIN DEPOT [Suspect]
     Active Substance: LEUPROLIDE ACETATE
     Indication: ENDOMETRIOSIS
     Route: 050
     Dates: start: 20151015, end: 20151015
  2. LUCRIN DEPOT [Suspect]
     Active Substance: LEUPROLIDE ACETATE
     Route: 050
     Dates: start: 20170615
  3. LUCRIN DEPOT [Suspect]
     Active Substance: LEUPROLIDE ACETATE
     Route: 050
  4. DESOGESTREL [Concomitant]
     Active Substance: DESOGESTREL
     Indication: PRODUCT USED FOR UNKNOWN INDICATION
     Route: 048

REACTIONS (2)
  - Pain [Not Recovered/Not Resolved]
  - Endometriosis [Recovered/Resolved]

NARRATIVE: CASE EVENT DATE: 201601
